FAERS Safety Report 7372433-5 (Version None)
Quarter: 2011Q1

REPORT INFORMATION
  Report Type: 
  Country: None (occurrence: None)
  Receive Date: 20110324
  Receipt Date: 20110321
  Transmission Date: 20110831
  Serious: Yes (Life-Threatening, Hospitalization, Other)
  Sender: FDA-Public Use
  Company Number: PHHY2011FR23155

PATIENT
  Sex: Male

DRUGS (2)
  1. ADENURIC [Concomitant]
     Dosage: UNK
  2. CERTICAN [Suspect]
     Dosage: 0.75 MG, BID
     Dates: start: 20100101

REACTIONS (4)
  - DRUG LEVEL INCREASED [None]
  - NEPHROPATHY TOXIC [None]
  - RENAL FAILURE ACUTE [None]
  - RENAL TUBULAR NECROSIS [None]
